FAERS Safety Report 5601867-1 (Version None)
Quarter: 2008Q1

REPORT INFORMATION
  Report Type: 
  Country: None (occurrence: None)
  Receive Date: 20080124
  Receipt Date: 20080113
  Transmission Date: 20080703
  Serious: Yes (Other)
  Sender: FDA-Public Use
  Company Number: US-PFIZER INC-2008004478

PATIENT
  Sex: Female
  Weight: 52.2 kg

DRUGS (2)
  1. CHANTIX [Suspect]
     Indication: SMOKING CESSATION THERAPY
     Dosage: TEXT:EVERY DAY
  2. DRUG, UNSPECIFIED [Concomitant]

REACTIONS (3)
  - HEADACHE [None]
  - PNEUMONIA [None]
  - SINUSITIS [None]
